FAERS Safety Report 13350448 (Version 4)
Quarter: 2017Q2

REPORT INFORMATION
  Report Type: Spontaneous
  Country: US (occurrence: US)
  Receive Date: 20170320
  Receipt Date: 20170419
  Transmission Date: 20170830
  Serious: Yes (Other)
  Sender: FDA-Public Use
  Company Number: US-JNJFOC-20170312574

PATIENT
  Age: 80 Year
  Sex: Female
  Weight: 76.2 kg

DRUGS (2)
  1. SIMPONI [Suspect]
     Active Substance: GOLIMUMAB
     Indication: COLITIS ULCERATIVE
     Route: 058
     Dates: start: 20170227
  2. SIMPONI [Suspect]
     Active Substance: GOLIMUMAB
     Indication: COLITIS ULCERATIVE
     Route: 058
     Dates: start: 2014

REACTIONS (8)
  - Fall [Unknown]
  - Diarrhoea [Not Recovered/Not Resolved]
  - Complication associated with device [Unknown]
  - Drug dose omission [Not Recovered/Not Resolved]
  - Weight decreased [Unknown]
  - Spinal fracture [Not Recovered/Not Resolved]
  - Vomiting [Not Recovered/Not Resolved]
  - Device malfunction [Unknown]

NARRATIVE: CASE EVENT DATE: 2016
